FAERS Safety Report 11261720 (Version 2)
Quarter: 2015Q3

REPORT INFORMATION
  Report Type: Spontaneous
  Country: PL (occurrence: PL)
  Receive Date: 20150710
  Receipt Date: 20150719
  Transmission Date: 20151125
  Serious: Yes (Other)
  Sender: FDA-Public Use
  Company Number: PHHY2015PL079824

PATIENT
  Age: 49 Year

DRUGS (4)
  1. ALCOHOL. [Suspect]
     Active Substance: ALCOHOL
     Indication: SCLEROTHERAPY
     Dosage: 4 ML, UNK
     Route: 065
  2. ALCOHOL. [Suspect]
     Active Substance: ALCOHOL
     Indication: ECHINOCOCCIASIS
  3. ALBENDAZOLE [Concomitant]
     Active Substance: ALBENDAZOLE
     Indication: ECHINOCOCCIASIS
     Dosage: 200 MG, UNK
     Route: 065
  4. ALBENDAZOLE [Concomitant]
     Active Substance: ALBENDAZOLE
     Dosage: 400 MG, QD
     Route: 065

REACTIONS (3)
  - Pyrexia [Recovered/Resolved]
  - Peritoneal dialysis complication [Recovered/Resolved]
  - Chemical peritonitis [Recovered/Resolved]
